FAERS Safety Report 4456183-0 (Version None)
Quarter: 2004Q3

REPORT INFORMATION
  Report Type: 
  Country: None (occurrence: None)
  Receive Date: 20040920
  Receipt Date: 20040908
  Transmission Date: 20050211
  Serious: Yes (Hospitalization)
  Sender: FDA-Public Use
  Company Number: 04P-056-0269964-00

PATIENT
  Age: 58 Year
  Sex: Male

DRUGS (4)
  1. KALETRA [Suspect]
     Indication: HIV INFECTION
     Dosage: 1 CAPSULE, 6 N 1 D, PER ORAL
     Route: 048
     Dates: start: 20040116
  2. VIRAMUNE [Suspect]
     Indication: HIV INFECTION
     Dosage: 400 MG, 1 IN 1 D, PER ORAL
     Route: 048
  3. VIREAD [Suspect]
     Indication: HIV INFECTION
     Dosage: 245 MG, 1 IN 1 D, PER ORAL
     Route: 048
     Dates: start: 20040116
  4. VALACYCLOVIR HCL [Concomitant]

REACTIONS (2)
  - ARTHRALGIA [None]
  - OSTEONECROSIS [None]
